FAERS Safety Report 8360330-8 (Version None)
Quarter: 2012Q1

REPORT INFORMATION
  Report Type: 
  Country: None (occurrence: None)
  Receive Date: 20120323
  Receipt Date: 20111130
  Transmission Date: 20120608
  Serious: Yes (Hospitalization, Other)
  Sender: FDA-Public Use
  Company Number: 163-21880-11091032

PATIENT
  Age: 85 Year
  Sex: Female
  Weight: 68.9 kg

DRUGS (13)
  1. NIACIN [Concomitant]
  2. SERTRALINE HYDROCHLORIDE [Concomitant]
  3. ASPIRIN [Concomitant]
  4. SEROQUEL [Concomitant]
  5. LOVASTATIN (LOVASTIN) [Concomitant]
  6. POTASSIUM CHLORIDE [Concomitant]
  7. REVLIMID [Suspect]
     Indication: 5Q MINUS SYNDROME
     Dosage: 10 MG, HS, PO 20 MG, QD, PO 5 MG, HS, PO
     Route: 048
     Dates: start: 20110817, end: 20110916
  8. REVLIMID [Suspect]
     Indication: 5Q MINUS SYNDROME
     Dosage: 10 MG, HS, PO 20 MG, QD, PO 5 MG, HS, PO
     Route: 048
     Dates: start: 20110901
  9. REVLIMID [Suspect]
     Indication: 5Q MINUS SYNDROME
     Dosage: 10 MG, HS, PO 20 MG, QD, PO 5 MG, HS, PO
     Route: 048
     Dates: start: 20110830, end: 20110831
  10. ATENOLOL [Concomitant]
  11. LASIX [Concomitant]
  12. ARANESP [Concomitant]
  13. FOSAMAX [Concomitant]

REACTIONS (6)
  - URINARY TRACT INFECTION [None]
  - CONFUSIONAL STATE [None]
  - INCORRECT DOSE ADMINISTERED [None]
  - BONE MARROW FAILURE [None]
  - ASTHENIA [None]
  - DIARRHOEA [None]
